FAERS Safety Report 5287976-8 (Version None)
Quarter: 2007Q2

REPORT INFORMATION
  Report Type: 
  Country: None (occurrence: None)
  Receive Date: 20070405
  Receipt Date: 20070329
  Transmission Date: 20071010
  Serious: Yes (Other)
  Sender: FDA-Public Use
  Company Number: US-JNJFOC-20070301526

PATIENT
  Age: 54 Year
  Sex: Female

DRUGS (5)
  1. LEVAQUIN [Suspect]
     Indication: HYSTERECTOMY
     Route: 042
  2. LEVAQUIN [Concomitant]
     Indication: BIOPSY CERVIX
     Route: 065
  3. LACTATED RINGER'S [Concomitant]
     Route: 042
  4. ATORVASTATIN CALCIUM [Concomitant]
     Route: 065
  5. SERTRALINE [Concomitant]
     Route: 065

REACTIONS (4)
  - DYSPNOEA [None]
  - ERYTHEMA [None]
  - LOSS OF CONSCIOUSNESS [None]
  - PARALYSIS FLACCID [None]
